FAERS Safety Report 8545589-6 (Version None)
Quarter: 2012Q3

REPORT INFORMATION
  Report Type: 
  Country: None (occurrence: None)
  Receive Date: 20120727
  Receipt Date: 20120720
  Transmission Date: 20120928
  Serious: Yes (Hospitalization, Other)
  Sender: FDA-Public Use
  Company Number: IN-B.I. PHARMACEUTICALS,INC./RIDGEFIELD-2012-CS-01056IG

PATIENT
  Sex: Male
  Weight: 60 kg

DRUGS (2)
  1. TRAJENTA [Suspect]
     Indication: DIABETES MELLITUS
     Dosage: 5 MG
     Route: 048
     Dates: start: 20120717, end: 20120719
  2. ATORVASTATIN [Concomitant]

REACTIONS (4)
  - VOMITING [None]
  - PHARYNGITIS [None]
  - DIARRHOEA [None]
  - COUGH [None]
